FAERS Safety Report 15259776 (Version 1)
Quarter: 2018Q3

REPORT INFORMATION
  Report Type: Spontaneous
  Country: US (occurrence: US)
  Receive Date: 20180809
  Receipt Date: 20180809
  Transmission Date: 20181010
  Serious: No
  Sender: FDA-Public Use
  Company Number: US-MYLANLABS-2018M1060410

PATIENT
  Age: 51 Year
  Sex: Female

DRUGS (2)
  1. TRETINOIN. [Suspect]
     Active Substance: TRETINOIN
     Indication: PIGMENTATION DISORDER
     Dosage: UNK
     Dates: end: 201710
  2. TRETINOIN. [Suspect]
     Active Substance: TRETINOIN
     Indication: PROPHYLAXIS AGAINST SOLAR RADIATION

REACTIONS (3)
  - Rash [Recovered/Resolved]
  - Product physical consistency issue [Unknown]
  - Product colour issue [Unknown]

NARRATIVE: CASE EVENT DATE: 201710
